FAERS Safety Report 17466890 (Version 1)
Quarter: 2020Q1

REPORT INFORMATION
  Report Type: Spontaneous
  Country: US (occurrence: US)
  Receive Date: 20200227
  Receipt Date: 20200227
  Transmission Date: 20200409
  Serious: Yes (Hospitalization, Other)
  Sender: FDA-Public Use
  Company Number: US-APOTEX-2020AP008216

PATIENT
  Age: 29 Year
  Sex: Female

DRUGS (1)
  1. KETOROLAC [Suspect]
     Active Substance: KETOROLAC TROMETHAMINE
     Indication: MENSTRUAL DISORDER
     Dosage: UNK UNK, PRN (OCCASIONAL)
     Route: 065

REACTIONS (2)
  - Gastric haemorrhage [Unknown]
  - Gastrointestinal injury [Unknown]
